FAERS Safety Report 12806046 (Version 1)
Quarter: 2016Q4

REPORT INFORMATION
  Report Type: Spontaneous
  Country: US (occurrence: US)
  Receive Date: 20161003
  Receipt Date: 20161003
  Transmission Date: 20170207
  Serious: No
  Sender: FDA-Public Use
  Company Number: None

PATIENT

DRUGS (1)
  1. DULOXETINE HCL 20MG [Suspect]
     Active Substance: DULOXETINE HYDROCHLORIDE
     Indication: PAIN
     Route: 048
     Dates: start: 20160701, end: 20160721

REACTIONS (2)
  - Pain [None]
  - Insomnia [None]

NARRATIVE: CASE EVENT DATE: 20160721
